FAERS Safety Report 16068884 (Version 1)
Quarter: 2019Q1

REPORT INFORMATION
  Report Type: Spontaneous
  Country: DE (occurrence: DE)
  Receive Date: 20190313
  Receipt Date: 20190313
  Transmission Date: 20190418
  Serious: Yes (Hospitalization, Other)
  Sender: FDA-Public Use
  Company Number: PHHY2015DE062976

PATIENT
  Age: 64 Year
  Sex: Female

DRUGS (6)
  1. SIMVASTATIN. [Concomitant]
     Active Substance: SIMVASTATIN
     Indication: PRODUCT USED FOR UNKNOWN INDICATION
     Dosage: 10 MG, QD (ONCE IN EVENING)
     Route: 065
  2. VASOPRESSIN. [Concomitant]
     Active Substance: VASOPRESSIN
     Dosage: 0.81 UG/KG, BODY MASS/MIN
     Route: 065
  3. TROMETAMOL [Concomitant]
     Active Substance: TROMETHAMINE
     Indication: PROPHYLAXIS
     Route: 065
  4. METFORMIN [Suspect]
     Active Substance: METFORMIN HYDROCHLORIDE
     Indication: TYPE 2 DIABETES MELLITUS
     Dosage: 1000 MG, BID (ONCE IN MORNING AND IN EVENING)
     Route: 065
     Dates: start: 201202, end: 201404
  5. VASOPRESSIN. [Concomitant]
     Active Substance: VASOPRESSIN
     Indication: HYPOVOLAEMIA
     Route: 065
  6. METOPROLOL. [Concomitant]
     Active Substance: METOPROLOL
     Indication: HYPERTENSION
     Dosage: 47.5 MG, QD (ONCE IN MORNING )
     Route: 065

REACTIONS (21)
  - Dehydration [Unknown]
  - Ventricular tachycardia [Recovering/Resolving]
  - Acute kidney injury [Unknown]
  - Hypothermia [Unknown]
  - Drug level increased [Recovered/Resolved]
  - Rectal haemorrhage [Unknown]
  - Hypotension [Recovering/Resolving]
  - Abdominal pain lower [Unknown]
  - Pleural effusion [Recovered/Resolved]
  - Bradycardia [Recovering/Resolving]
  - Dyspnoea [Unknown]
  - Hypovolaemia [Unknown]
  - Metabolic acidosis [Unknown]
  - Hyperkalaemia [Recovering/Resolving]
  - Diarrhoea [Unknown]
  - Hyponatraemia [Recovering/Resolving]
  - Pulmonary oedema [Recovering/Resolving]
  - Malaise [Unknown]
  - Lactic acidosis [Recovering/Resolving]
  - Ascites [Recovered/Resolved]
  - Tachypnoea [Unknown]

NARRATIVE: CASE EVENT DATE: 201404
